FAERS Safety Report 18868755 (Version 2)
Quarter: 2021Q2

REPORT INFORMATION
  Report Type: Spontaneous
  Country: US (occurrence: US)
  Receive Date: 20210209
  Receipt Date: 20210409
  Transmission Date: 20210717
  Serious: No
  Sender: FDA-Public Use
  Company Number: US-ASTRAZENECA-2021A028992

PATIENT
  Sex: Female
  Weight: 59 kg

DRUGS (1)
  1. PULMICORT FLEXHALER [Suspect]
     Active Substance: BUDESONIDE
     Indication: COVID-19
     Route: 055
     Dates: start: 20210125

REACTIONS (7)
  - Lung disorder [Unknown]
  - Incorrect dose administered by device [Unknown]
  - Memory impairment [Unknown]
  - Device failure [Unknown]
  - Feeling abnormal [Unknown]
  - Cough [Unknown]
  - Fatigue [Unknown]
